FAERS Safety Report 8384673-7 (Version None)
Quarter: 2012Q2

REPORT INFORMATION
  Report Type: 
  Country: None (occurrence: None)
  Receive Date: 20120524
  Receipt Date: 20120514
  Transmission Date: 20120825
  Serious: Yes (Hospitalization)
  Sender: FDA-Public Use
  Company Number: US-ELI_LILLY_AND_COMPANY-US201101003357

PATIENT
  Sex: Female

DRUGS (7)
  1. FORTEO [Suspect]
     Indication: OSTEOPOROSIS
     Dosage: 20 UG, DAILY (1/D)
  2. CALCIUM [Concomitant]
  3. FORTEO [Suspect]
     Dosage: 20 UG, QD
     Dates: end: 20120301
  4. FORTEO [Suspect]
     Dosage: 20 UG, QD
     Route: 065
  5. FORTEO [Suspect]
     Dosage: 20 UG, QD
  6. FORTEO [Suspect]
     Dosage: 20 UG, QD
     Route: 065
  7. VITAMIN D [Concomitant]

REACTIONS (7)
  - MEMORY IMPAIRMENT [None]
  - MUSCLE ATROPHY [None]
  - MEDICATION ERROR [None]
  - LIGAMENT SPRAIN [None]
  - MUSCLE SPASMS [None]
  - ABNORMAL BEHAVIOUR [None]
  - ABDOMINAL PAIN UPPER [None]
